FAERS Safety Report 9601604 (Version 2)
Quarter: 2013Q4

REPORT INFORMATION
  Report Type: Spontaneous
  Country: AR (occurrence: AR)
  Receive Date: 20131007
  Receipt Date: 20131022
  Transmission Date: 20140711
  Serious: Yes (Other)
  Sender: FDA-Public Use
  Company Number: AR-AMGEN-ARGSP2013069852

PATIENT
  Age: 67 Year
  Sex: Female

DRUGS (3)
  1. ENBREL [Suspect]
     Indication: RHEUMATOID ARTHRITIS
     Dosage: 50 MG, EVERY 10 DAYS
     Route: 065
     Dates: start: 20061026
  2. ARTRAIT                            /00113801/ [Concomitant]
     Dosage: 7.5 MG, UNK
     Route: 048
     Dates: start: 2006
  3. AZACORTID [Concomitant]
     Dosage: UNK
     Route: 048
     Dates: start: 2006

REACTIONS (4)
  - Intervertebral disc protrusion [Recovering/Resolving]
  - Neck pain [Recovering/Resolving]
  - Arthropathy [Recovering/Resolving]
  - Arthralgia [Recovering/Resolving]
